FAERS Safety Report 16510492 (Version 1)
Quarter: 2019Q3

REPORT INFORMATION
  Report Type: Spontaneous
  Country: US (occurrence: US)
  Receive Date: 20190521
  Receipt Date: 20190521
  Transmission Date: 20191004
  Serious: Yes (Hospitalization)
  Sender: FDA-Public Use
  Company Number: None

PATIENT
  Age: 50 Year
  Sex: Female
  Weight: 74.1 kg

DRUGS (9)
  1. DAUNORUBICIN [Suspect]
     Active Substance: DAUNORUBICIN
     Dates: end: 20190412
  2. METHOTREXATE 50MG [Suspect]
     Active Substance: METHOTREXATE
  3. CYTARABINE. [Suspect]
     Active Substance: CYTARABINE
     Dates: end: 20190502
  4. MERCAPTOPURINE. [Suspect]
     Active Substance: MERCAPTOPURINE
     Dates: end: 20190505
  5. DEXAMETHASONE. [Suspect]
     Active Substance: DEXAMETHASONE
     Dates: end: 20190411
  6. METHOTREXATE. [Suspect]
     Active Substance: METHOTREXATE
     Dates: end: 20190516
  7. VINCRISTINE SULFATE. [Suspect]
     Active Substance: VINCRISTINE SULFATE
     Dates: end: 20190412
  8. CYCLOPHOSPHAMIDE. [Suspect]
     Active Substance: CYCLOPHOSPHAMIDE
  9. ONCASPAR [Suspect]
     Active Substance: PEGASPARGASE
     Dates: end: 20190506

REACTIONS (5)
  - Post lumbar puncture syndrome [None]
  - Diarrhoea [None]
  - Nausea [None]
  - Vomiting [None]
  - Nuchal rigidity [None]

NARRATIVE: CASE EVENT DATE: 20190516
